FAERS Safety Report 22139579 (Version 1)
Quarter: 2023Q1

REPORT INFORMATION
  Report Type: Spontaneous
  Country: US (occurrence: US)
  Receive Date: 20230327
  Receipt Date: 20230327
  Transmission Date: 20230418
  Serious: No
  Sender: FDA-Public Use
  Company Number: US-JNJFOC-20230338119

PATIENT
  Age: 53 Year
  Sex: Female
  Weight: 62.1 kg

DRUGS (14)
  1. TYLENOL [Suspect]
     Active Substance: ACETAMINOPHEN
     Indication: Headache
     Route: 065
     Dates: start: 202210
  2. TREPROSTINIL [Concomitant]
     Active Substance: TREPROSTINIL
     Indication: Pulmonary arterial hypertension
     Route: 048
     Dates: start: 20221014
  3. TREPROSTINIL [Concomitant]
     Active Substance: TREPROSTINIL
     Indication: Myalgia
     Route: 048
     Dates: start: 202210
  4. TREPROSTINIL [Concomitant]
     Active Substance: TREPROSTINIL
     Route: 048
     Dates: start: 202210, end: 202210
  5. TREPROSTINIL [Concomitant]
     Active Substance: TREPROSTINIL
     Route: 048
     Dates: start: 2022, end: 2022
  6. TREPROSTINIL [Concomitant]
     Active Substance: TREPROSTINIL
     Route: 048
     Dates: start: 2022, end: 2022
  7. TREPROSTINIL [Concomitant]
     Active Substance: TREPROSTINIL
     Route: 048
     Dates: start: 2022, end: 2022
  8. TREPROSTINIL [Concomitant]
     Active Substance: TREPROSTINIL
     Route: 048
     Dates: start: 2022
  9. TREPROSTINIL [Concomitant]
     Active Substance: TREPROSTINIL
     Route: 048
     Dates: start: 20221223
  10. TREPROSTINIL [Concomitant]
     Active Substance: TREPROSTINIL
     Route: 048
  11. TREPROSTINIL [Concomitant]
     Active Substance: TREPROSTINIL
     Route: 048
  12. TREPROSTINIL [Concomitant]
     Active Substance: TREPROSTINIL
     Route: 048
  13. TREPROSTINIL [Concomitant]
     Active Substance: TREPROSTINIL
     Route: 048
  14. TADALAFIL [Concomitant]
     Active Substance: TADALAFIL
     Indication: Product used for unknown indication
     Route: 065

REACTIONS (1)
  - Off label use [Unknown]

NARRATIVE: CASE EVENT DATE: 20221001
